FAERS Safety Report 6249165-X (Version None)
Quarter: 2009Q2

REPORT INFORMATION
  Report Type: 
  Country: None (occurrence: None)
  Receive Date: 20090629
  Receipt Date: 20090624
  Transmission Date: 20091009
  Serious: Yes (Death, Hospitalization)
  Sender: FDA-Public Use
  Company Number: US-BAYER-200919166NA

PATIENT
  Age: 76 Year
  Sex: Male
  Weight: 88 kg

DRUGS (3)
  1. SORAFENIB [Suspect]
     Indication: MULTIPLE MYELOMA
     Dosage: TOTAL DAILY DOSE: 400 MG  UNIT DOSE: 200 MG
     Route: 048
     Dates: start: 20090331, end: 20090421
  2. BORTEZOMIB [Suspect]
     Indication: MULTIPLE MYELOMA
     Dosage: (CYCLE 1)  DAYS 1,8,15 AND 22
     Dates: start: 20090331, end: 20090421
  3. SOTALOL HYDROCHLORIDE [Concomitant]
     Dosage: TAKING ONLY HALF OF PRESCRIBED DOSE

REACTIONS (6)
  - ATRIAL FIBRILLATION [None]
  - CARDIO-RESPIRATORY ARREST [None]
  - CARDIOMYOPATHY [None]
  - INCORRECT DOSE ADMINISTERED [None]
  - PNEUMONIA [None]
  - TREATMENT NONCOMPLIANCE [None]
